FAERS Safety Report 22209220 (Version 17)
Quarter: 2025Q4

REPORT INFORMATION
  Report Type: Spontaneous
  Country: EU (occurrence: EU)
  Receive Date: 20230413
  Receipt Date: 20251223
  Transmission Date: 20260118
  Serious: Yes (Hospitalization, Other)
  Sender: CELLTRION
  Company Number: EU-CELLTRION INC.-2023FR007257

PATIENT

DRUGS (37)
  1. RITUXIMAB [Suspect]
     Active Substance: RITUXIMAB
     Indication: Diffuse large B-cell lymphoma
     Dosage: 1 COURSE/ 1 CURE/ UNK (1 COURSE,((MAMMIFERE /HAMSTER/CELLULES CHO))
     Route: 065
     Dates: start: 20221227
  2. ACUPAN [Suspect]
     Active Substance: NEFOPAM HYDROCHLORIDE
     Indication: Pain
     Dosage: ONE AMPOULE EVERY 4 HOURS (DOSAGE FORM: AMPULE)
     Route: 048
     Dates: start: 20230106, end: 20230302
  3. ALPRAZOLAM [Suspect]
     Active Substance: ALPRAZOLAM
     Indication: Anxiety
     Dosage: 0.25 MG (1TAB 0.25 MG IF ANGUISH)
     Route: 048
     Dates: start: 20230106, end: 20230209
  4. ARANESP [Suspect]
     Active Substance: DARBEPOETIN ALFA
     Indication: Anaemia
     Dosage: 1 DOSAGE FORN, 300 MICROGRAM PER GRAM
     Route: 058
     Dates: start: 20230213
  5. BACTRIM [Suspect]
     Active Substance: SULFAMETHOXAZOLE\TRIMETHOPRIM
     Indication: Bacterial infection
     Dosage: 400 MILLIGRAM, QD (1 DF, 1 TAB IN THE MORNING)
     Route: 048
     Dates: start: 20230106, end: 20230303
  6. LEUCOVORIN CALCIUM [Suspect]
     Active Substance: LEUCOVORIN CALCIUM
     Indication: Bacterial infection
     Dosage: 2 DF, 0.5 WEEK (A TAB EVERY MONDAY AND  THURSDAY)
     Route: 048
     Dates: start: 20230102
  7. LEUCOVORIN CALCIUM [Suspect]
     Active Substance: LEUCOVORIN CALCIUM
     Indication: Prophylaxis
  8. LEUCOVORIN CALCIUM [Suspect]
     Active Substance: LEUCOVORIN CALCIUM
     Indication: Haematotoxicity
  9. CASPOFUNGIN ACETATE [Suspect]
     Active Substance: CASPOFUNGIN ACETATE
     Indication: Fungal infection
     Dosage: 70 MG
     Route: 042
     Dates: start: 20230126
  10. CASPOFUNGIN ACETATE [Suspect]
     Active Substance: CASPOFUNGIN ACETATE
     Indication: Fungal infection
  11. CEFTRIAXONE [Suspect]
     Active Substance: CEFTRIAXONE
     Indication: Bacterial infection
     Dosage: 2 GRAM,QD (1G MORNING AND EVENING
     Route: 048
     Dates: start: 20230209
  12. CIPROFLOXACIN [Suspect]
     Active Substance: CIPROFLOXACIN
     Indication: Bacterial infection
     Dosage: UNK
     Route: 065
     Dates: start: 20230203, end: 20230208
  13. CIPROFLOXACIN [Suspect]
     Active Substance: CIPROFLOXACIN
     Indication: Diffuse large B-cell lymphoma
  14. CYCLOPHOSPHAMIDE [Suspect]
     Active Substance: CYCLOPHOSPHAMIDE
     Indication: Diffuse large B-cell lymphoma
     Dosage: 1 COURSE
     Route: 065
     Dates: start: 20221227
  15. CYCLOPHOSPHAMIDE [Suspect]
     Active Substance: CYCLOPHOSPHAMIDE
     Indication: Diffuse large B-cell lymphoma
  16. DAPTOMYCIN [Suspect]
     Active Substance: DAPTOMYCIN
     Indication: Bacterial infection
     Dosage: 1 G
     Route: 042
     Dates: start: 20230211, end: 20230306
  17. DARBEPOETIN ALFA [Suspect]
     Active Substance: DARBEPOETIN ALFA
     Indication: Anaemia
     Dosage: 1 DOSAGE FORM, QW (300 MICROGRAM PER GRAM)
     Route: 058
     Dates: start: 20230213
  18. DOXORUBICIN [Suspect]
     Active Substance: DOXORUBICIN
     Indication: Diffuse large B-cell lymphoma
     Dosage: 1 COURSE
     Route: 065
     Dates: start: 20221227
  19. AMITRIPTYLINE HYDROCHLORIDE [Suspect]
     Active Substance: AMITRIPTYLINE HYDROCHLORIDE
     Indication: Pain
     Dosage: 35 GTT DROPS, TID 5 MOR, 10 DROP MIDDAY AND EVEN/1/12 MILLILITRE PER DAY
     Route: 048
     Dates: start: 20221210
  20. LOVENOX [Suspect]
     Active Substance: ENOXAPARIN SODIUM
     Indication: Constipation
     Dosage: 4000 INTERNATIONAL UNIT
     Route: 058
     Dates: start: 20230210
  21. LOVENOX [Suspect]
     Active Substance: ENOXAPARIN SODIUM
     Indication: Prophylaxis
  22. METRONIDAZOLE [Suspect]
     Active Substance: METRONIDAZOLE
     Indication: Bacterial infection
     Dosage: 500 MG, EVERY 2.67 HOUR (500 MG, TID)
     Route: 048
     Dates: start: 20230209, end: 20230303
  23. MORPHINE [Suspect]
     Active Substance: MORPHINE
     Indication: Pain
     Dosage: 30 MG, BID (1 TAB SKENAN LP30MG EVERY 12 HOURS)
     Route: 048
     Dates: start: 20230210, end: 20230218
  24. MORPHINE [Suspect]
     Active Substance: MORPHINE
     Dosage: 30 MG, BID (1 TAB SKENAN LP30MG EVERY 12 HOURS)
     Route: 048
     Dates: start: 20230210, end: 20230218
  25. MORPHINE [Suspect]
     Active Substance: MORPHINE
     Dosage: 30 MG, BID (1 TAB SKENAN LP30MG EVERY 12 HOURS); INTERVAL: 0.5 DAY
     Route: 048
     Dates: start: 20230210, end: 20230218
  26. NALOXEGOL OXALATE [Suspect]
     Active Substance: NALOXEGOL OXALATE
     Indication: Constipation
     Dosage: 25 MG, PRN (IF NECESSARY)
     Route: 048
     Dates: start: 20230211
  27. PANTOPRAZOLE SODIUM [Suspect]
     Active Substance: PANTOPRAZOLE SODIUM
     Indication: Constipation
     Dosage: 20 MILLIGRAM / DOSE DESCRIPTION: 20 MG
     Route: 048
     Dates: start: 20230106
  28. PANTOPRAZOLE SODIUM [Suspect]
     Active Substance: PANTOPRAZOLE SODIUM
     Indication: Gastritis prophylaxis
  29. ACETAMINOPHEN [Suspect]
     Active Substance: ACETAMINOPHEN
     Indication: Pain
     Dosage: 1 DF, Q6H (1 TABLET Q6H, MAXIMUM 3 TABLETS/D)
     Route: 048
     Dates: start: 20230211
  30. SKENAN [Suspect]
     Active Substance: MORPHINE SULFATE
     Indication: Pain
     Dosage: 120 MG, BID, 30 MG, BID (1 CP SKENAN  LP30MG TOUTES LES 12H)
     Route: 048
     Dates: start: 20230210, end: 20230218
  31. CILASTATIN SODIUM\IMIPENEM [Suspect]
     Active Substance: CILASTATIN SODIUM\IMIPENEM
     Indication: Bacterial infection
     Dosage: 800 MILLIGRAM, QD, 500MG/500MG
     Route: 042
     Dates: start: 20230114, end: 20230208
  32. VALACYCLOVIR HYDROCHLORIDE [Suspect]
     Active Substance: VALACYCLOVIR HYDROCHLORIDE
     Indication: Bacterial infection
     Dosage: 1,000 MG, QD, 500 MG MORNING AND EVENING 500 MG, BID
     Route: 048
     Dates: start: 20230106
  33. VINCRISTINE [Suspect]
     Active Substance: VINCRISTINE
     Indication: Diffuse large B-cell lymphoma
     Dosage: UNK, (1 CURE)
     Route: 065
     Dates: start: 20221227
  34. VINCRISTINE [Suspect]
     Active Substance: VINCRISTINE
     Dosage: 1 CURE, 1 COURSE
     Route: 065
     Dates: start: 20221227
  35. LEUCOVORIN CALCIUM [Suspect]
     Active Substance: LEUCOVORIN CALCIUM
     Indication: Prophylaxis
     Dosage: 2 DF, 0.5 WEEK (A TAB EVERY MONDAY AND THURSDAY)
     Route: 048
     Dates: start: 20230102
  36. LEUCOVORIN CALCIUM [Suspect]
     Active Substance: LEUCOVORIN CALCIUM
     Indication: Bacterial infection
  37. LEUCOVORIN CALCIUM [Suspect]
     Active Substance: LEUCOVORIN CALCIUM
     Indication: Prophylaxis

REACTIONS (1)
  - Agranulocytosis [Recovered/Resolved]

NARRATIVE: CASE EVENT DATE: 20230201
